FAERS Safety Report 4430551-5 (Version None)
Quarter: 2004Q3

REPORT INFORMATION
  Report Type: 
  Country: None (occurrence: None)
  Receive Date: 20040818
  Receipt Date: 20040810
  Transmission Date: 20050211
  Serious: Yes (Hospitalization, Other)
  Sender: FDA-Public Use
  Company Number: 2004227645AU

PATIENT
  Age: 64 Year

DRUGS (6)
  1. MACRODANTIN [Suspect]
  2. CYCLOPHOSPHAMIDE [Suspect]
  3. VINCRISTINE SULFATE [Suspect]
  4. ADRIAMYCIN PFS [Suspect]
  5. NEULASTA [Suspect]
  6. PREDNISOLONE [Concomitant]

REACTIONS (6)
  - CANDIDIASIS [None]
  - COUGH [None]
  - CRYPTOGENIC ORGANIZING PNEUMONIA [None]
  - PLEURAL EFFUSION [None]
  - PNEUMOCYSTIS CARINII PNEUMONIA [None]
  - PYREXIA [None]
